FAERS Safety Report 10016153 (Version 1)
Quarter: 2014Q1

REPORT INFORMATION
  Report Type: Spontaneous
  Country: SE (occurrence: SE)
  Receive Date: 20140317
  Receipt Date: 20140317
  Transmission Date: 20141002
  Serious: Yes (Death)
  Sender: FDA-Public Use
  Company Number: SE-WATSON-2014-04448

PATIENT
  Age: 73 Year
  Sex: Male

DRUGS (1)
  1. POTASSIUM CHLORIDE EXTENDED-RELEASE (WATSON LABORATORIES) [Suspect]
     Indication: EUTHANASIA
     Dosage: UNK
     Route: 042

REACTIONS (1)
  - Death [Fatal]
